FAERS Safety Report 12859315 (Version 2)
Quarter: 2016Q4

REPORT INFORMATION
  Report Type: Report from Study
  Country: BR (occurrence: BR)
  Receive Date: 20161018
  Receipt Date: 20161114
  Transmission Date: 20170207
  Serious: Yes (Hospitalization, Other)
  Sender: FDA-Public Use
  Company Number: PHHY2015BR139467

PATIENT
  Age: 40 Year
  Sex: Female
  Weight: 57 kg

DRUGS (2)
  1. HYDREA [Concomitant]
     Active Substance: HYDROXYUREA
     Indication: IRON OVERLOAD
     Dosage: UNK
     Route: 048
  2. EXJADE [Suspect]
     Active Substance: DEFERASIROX
     Indication: SICKLE CELL ANAEMIA
     Dosage: 500 MG, TID
     Route: 048

REACTIONS (11)
  - Pneumonia [Recovered/Resolved]
  - Malaise [Not Recovered/Not Resolved]
  - Urinary tract infection [Recovered/Resolved]
  - Pleural effusion [Recovered/Resolved]
  - Haematocrit decreased [Unknown]
  - Sickle cell anaemia with crisis [Unknown]
  - Fatigue [Unknown]
  - Dizziness [Unknown]
  - Pain [Not Recovered/Not Resolved]
  - Hepatic infection [Recovered/Resolved]
  - Hepatomegaly [Unknown]

NARRATIVE: CASE EVENT DATE: 20160620
